FAERS Safety Report 5409366-7 (Version None)
Quarter: 2007Q3

REPORT INFORMATION
  Report Type: 
  Country: None (occurrence: None)
  Receive Date: 20070807
  Receipt Date: 20070724
  Transmission Date: 20080115
  Serious: Yes (Hospitalization)
  Sender: FDA-Public Use
  Company Number: CIP07001490

PATIENT
  Age: 80 Year
  Sex: Female

DRUGS (5)
  1. RISEDRONATE SODIUM [Suspect]
     Indication: OSTEOPOROSIS
     Dosage: 2.5 MG DAILY, ORAL
     Route: 048
     Dates: end: 20070712
  2. BLOPRES (CANDESARTAN CILEXETIL) [Concomitant]
  3. PRAVASTATIN [Concomitant]
  4. NILZIPIN (NITRENDIPINE) [Concomitant]
  5. SIGMART (NICORANDIL) [Concomitant]

REACTIONS (2)
  - OSTEOMYELITIS [None]
  - PAIN IN JAW [None]
